FAERS Safety Report 19407146 (Version 1)
Quarter: 2021Q2

REPORT INFORMATION
  Report Type: Spontaneous
  Country: CN (occurrence: CN)
  Receive Date: 20210611
  Receipt Date: 20210611
  Transmission Date: 20210717
  Serious: Yes (Other)
  Sender: FDA-Public Use
  Company Number: CN-ASTRAZENECA-2021A511259

PATIENT
  Age: 28855 Day
  Sex: Female
  Weight: 65 kg

DRUGS (7)
  1. METHYLPREDNISOLONE. [Concomitant]
     Active Substance: METHYLPREDNISOLONE
  2. CIMETIDINE [Concomitant]
     Active Substance: CIMETIDINE
  3. RECOMBINANT BOVINE BASIC FIBROBLAST GROWTH FACTOR [Concomitant]
     Active Substance: FIBROBLAST GROWTH FACTOR 2 (BOVINE)
  4. TAGRISSO [Suspect]
     Active Substance: OSIMERTINIB
     Indication: CHEMOTHERAPY
     Route: 048
     Dates: start: 20210421, end: 20210515
  5. VITAMIN C [Concomitant]
     Active Substance: ASCORBIC ACID
  6. CALCIUM GLUCONATE. [Concomitant]
     Active Substance: CALCIUM GLUCONATE
  7. HUMAN IMMUNOGLOBULIN [Concomitant]

REACTIONS (1)
  - Toxic epidermal necrolysis [Recovering/Resolving]

NARRATIVE: CASE EVENT DATE: 20210515
